FAERS Safety Report 5125010-0 (Version None)
Quarter: 2006Q4

REPORT INFORMATION
  Report Type: 
  Country: None (occurrence: None)
  Receive Date: 20061011
  Receipt Date: 20051230
  Transmission Date: 20070319
  Serious: Yes (Other)
  Sender: FDA-Public Use
  Company Number: DE-GLAXOSMITHKLINE-D0048351A

PATIENT
  Sex: Male

DRUGS (2)
  1. AVANDAMET [Suspect]
     Dosage: 1004MG UNKNOWN
     Route: 048
  2. DILATREND [Suspect]
     Route: 065
     Dates: start: 20060101

REACTIONS (4)
  - ABDOMINAL PAIN [None]
  - DRUG INTERACTION [None]
  - GASTROINTESTINAL DISORDER [None]
  - HYPOGLYCAEMIA [None]
